FAERS Safety Report 7437853-9 (Version None)
Quarter: 2011Q2

REPORT INFORMATION
  Report Type: 
  Country: None (occurrence: None)
  Receive Date: 20110426
  Receipt Date: 20110328
  Transmission Date: 20111010
  Serious: Yes (Hospitalization, Other)
  Sender: FDA-Public Use
  Company Number: A0920619A

PATIENT
  Age: 85 Year
  Sex: Female

DRUGS (16)
  1. BUDESONIDE [Concomitant]
  2. POTASSIUM [Concomitant]
  3. GLUCOSAMINE [Concomitant]
  4. TRAMADOL [Concomitant]
  5. FOLIC ACID [Concomitant]
  6. NORCO [Concomitant]
  7. VITAMIN B-12 [Concomitant]
  8. METOPROLOL [Concomitant]
  9. LISINOPRIL [Concomitant]
  10. METFORMIN [Concomitant]
  11. AMARYL [Concomitant]
  12. PROMACTA [Suspect]
     Dosage: 50MG PER DAY
     Dates: start: 20101201, end: 20110201
  13. FUROSEMIDE [Concomitant]
  14. SIMVASTATIN [Concomitant]
  15. PYRIDOXINE [Concomitant]
  16. FORMOTEROL FUMARATE [Concomitant]

REACTIONS (9)
  - INSOMNIA [None]
  - LOCAL SWELLING [None]
  - DEEP VEIN THROMBOSIS [None]
  - HYPERLIPIDAEMIA [None]
  - DYSPNOEA EXERTIONAL [None]
  - OEDEMA PERIPHERAL [None]
  - COUGH [None]
  - HYPOTHYROIDISM [None]
  - DYSPNOEA [None]
